FAERS Safety Report 8534239-0 (Version None)
Quarter: 2012Q3

REPORT INFORMATION
  Report Type: 
  Country: None (occurrence: None)
  Receive Date: 20120724
  Receipt Date: 20120719
  Transmission Date: 20120928
  Serious: Yes (Hospitalization)
  Sender: FDA-Public Use
  Company Number: JP-ABBOTT-12P-087-0957882-00

PATIENT
  Age: 49 Year
  Sex: Female

DRUGS (4)
  1. BEZAFIBRATE [Concomitant]
  2. EMTRICITABINE/TENOFOVIR DISOPROXIL FUMARATE [Suspect]
     Indication: HIV INFECTION
     Dosage: 200 MG/300 MG DAILY
  3. LOPINAVIR AND RITONAVIR [Suspect]
     Indication: HIV INFECTION
     Dosage: 800 MG/200 MG DAILY
  4. BEZAFIBRATE [Concomitant]
     Indication: HYPERTRIGLYCERIDAEMIA
     Dosage: 400 MG DAILY

REACTIONS (2)
  - FANCONI SYNDROME ACQUIRED [None]
  - RENAL TUBULAR ACIDOSIS [None]
